FAERS Safety Report 12823840 (Version 1)
Quarter: 2016Q4

REPORT INFORMATION
  Report Type: Report from Study
  Country: MX (occurrence: MX)
  Receive Date: 20161006
  Receipt Date: 20161006
  Transmission Date: 20170207
  Serious: Yes (Hospitalization)
  Sender: FDA-Public Use
  Company Number: MX-UCBSA-2016038274

PATIENT
  Age: 5 Month
  Sex: Male
  Weight: 7 kg

DRUGS (3)
  1. LEVETIRACETAM. [Suspect]
     Active Substance: LEVETIRACETAM
     Indication: EPILEPSY
     Dosage: 0.3 ML, 2X/DAY (BID); (0.3ML/12 HRS)
     Route: 048
     Dates: start: 20160719, end: 201608
  2. LEVETIRACETAM. [Suspect]
     Active Substance: LEVETIRACETAM
     Dosage: 0.5 ML, 2X/DAY (BID); (0.5ML/12 HRS)
     Route: 048
     Dates: start: 201608, end: 201608
  3. LEVETIRACETAM. [Suspect]
     Active Substance: LEVETIRACETAM
     Dosage: 1 ML, 2X/DAY (BID)
     Route: 048
     Dates: start: 20160830

REACTIONS (2)
  - Pneumonia [Recovered/Resolved]
  - Off label use [Unknown]

NARRATIVE: CASE EVENT DATE: 20160719
